FAERS Safety Report 15855360 (Version 1)
Quarter: 2019Q1

REPORT INFORMATION
  Report Type: Spontaneous
  Country: GB (occurrence: GB)
  Receive Date: 20190122
  Receipt Date: 20190122
  Transmission Date: 20190417
  Serious: Yes (Hospitalization)
  Sender: FDA-Public Use
  Company Number: GB-ALLERGAN-1902442US

PATIENT
  Age: 66 Year
  Sex: Female

DRUGS (4)
  1. CHLORAMPHENICOL [Suspect]
     Active Substance: CHLORAMPHENICOL
     Indication: ULCERATIVE KERATITIS
     Dosage: UNK
     Route: 047
  2. CORTICOSTEROIDS [Concomitant]
     Active Substance: CORTICOSTEROID NOS
     Dosage: UNK
     Route: 061
  3. TIMOLOL UNK [Suspect]
     Active Substance: TIMOLOL
     Indication: ULCERATIVE KERATITIS
     Dosage: UNK
     Route: 047
  4. CORTICOSTEROIDS [Concomitant]
     Active Substance: CORTICOSTEROID NOS
     Indication: PRODUCT USED FOR UNKNOWN INDICATION
     Dosage: UNK
     Route: 061

REACTIONS (3)
  - Corneal abscess [Unknown]
  - Off label use [Unknown]
  - Keratitis [Recovering/Resolving]
